FAERS Safety Report 4756372-1 (Version None)
Quarter: 2005Q3

REPORT INFORMATION
  Report Type: 
  Country: None (occurrence: None)
  Receive Date: 20050830
  Receipt Date: 20050610
  Transmission Date: 20060218
  Serious: No
  Sender: FDA-Public Use
  Company Number: US-GLAXOSMITHKLINE-A0562123A

PATIENT
  Age: 58 Year
  Sex: Male

DRUGS (2)
  1. WELLBUTRIN XL [Suspect]
     Indication: ATTENTION DEFICIT/HYPERACTIVITY DISORDER
     Dosage: 100MG PER DAY
     Route: 048
     Dates: start: 20041101, end: 20050601
  2. METADATE CD [Concomitant]

REACTIONS (1)
  - ARTHRALGIA [None]
